FAERS Safety Report 16687572 (Version 1)
Quarter: 2019Q4

REPORT INFORMATION
  Report Type: Spontaneous
  Country: US (occurrence: US)
  Receive Date: 20190808
  Receipt Date: 20190808
  Transmission Date: 20200122
  Serious: No
  Sender: FDA-Public Use
  Company Number: None

PATIENT
  Age: 37 Year
  Sex: Female
  Weight: 72 kg

DRUGS (3)
  1. MULTIVITAMIN BONE VITAMIN CALLED BONE UP [Concomitant]
  2. BOTOX [Suspect]
     Active Substance: ONABOTULINUMTOXINA
     Indication: PRODUCT USED FOR UNKNOWN INDICATION
     Dosage: ?          OTHER STRENGTH:CCS;QUANTITY:2 INJECTION(S);?
     Route: 030
  3. BUTALBITOL [Concomitant]

REACTIONS (15)
  - Thirst [None]
  - Eye pain [None]
  - Influenza [None]
  - Nausea [None]
  - Vertigo [None]
  - Headache [None]
  - Sinus pain [None]
  - Hyperhidrosis [None]
  - Hypoaesthesia [None]
  - Pyrexia [None]
  - Off label use [None]
  - Dyspnoea [None]
  - Gait disturbance [None]
  - Pelvic pain [None]
  - Throat tightness [None]

NARRATIVE: CASE EVENT DATE: 20190619
